FAERS Safety Report 6211568-7 (Version None)
Quarter: 2009Q2

REPORT INFORMATION
  Report Type: 
  Country: None (occurrence: None)
  Receive Date: 20090602
  Receipt Date: 20090529
  Transmission Date: 20091009
  Serious: Yes (Hospitalization)
  Sender: FDA-Public Use
  Company Number: FR-JNJFOC-20090507012

PATIENT
  Age: 88 Year
  Sex: Male

DRUGS (13)
  1. OFLOCET [Suspect]
     Indication: STAPHYLOCOCCAL INFECTION
     Route: 048
  2. FUSIDATE SODIUM [Suspect]
     Route: 048
  3. FUSIDATE SODIUM [Suspect]
     Indication: STAPHYLOCOCCAL INFECTION
     Route: 048
  4. NEXIUM [Concomitant]
     Route: 065
  5. CASODEX [Concomitant]
     Route: 048
  6. HEMIGOXINE NATIVELLE [Concomitant]
     Route: 048
  7. DOLIPRANE [Concomitant]
     Route: 065
  8. LASIX [Concomitant]
     Route: 065
  9. OXACILLIN [Concomitant]
     Route: 048
  10. OXACILLIN [Concomitant]
     Indication: STAPHYLOCOCCAL INFECTION
     Route: 048
  11. DALACINE [Concomitant]
     Indication: STAPHYLOCOCCAL INFECTION
     Route: 048
  12. RIFADIN [Concomitant]
     Indication: STAPHYLOCOCCAL INFECTION
     Route: 048
  13. ORBENIN CAP [Concomitant]
     Indication: STAPHYLOCOCCAL INFECTION
     Route: 065

REACTIONS (4)
  - EOSINOPHILIA [None]
  - PRURITUS [None]
  - RASH ERYTHEMATOUS [None]
  - SKIN LESION [None]
